FAERS Safety Report 7350343-7 (Version None)
Quarter: 2011Q1

REPORT INFORMATION
  Report Type: 
  Country: None (occurrence: None)
  Receive Date: 20110314
  Receipt Date: 20110301
  Transmission Date: 20110831
  Serious: Yes (Other)
  Sender: FDA-Public Use
  Company Number: BR-BAYER-2011-019549

PATIENT
  Sex: Female

DRUGS (1)
  1. CIPRO [Suspect]
     Indication: PRODUCT USED FOR UNKNOWN INDICATION
     Dosage: UNK
     Route: 048
     Dates: start: 20110301

REACTIONS (8)
  - VERTIGO [None]
  - SOMNOLENCE [None]
  - PRURITUS [None]
  - HYPOAESTHESIA ORAL [None]
  - DERMATITIS ALLERGIC [None]
  - DYSSTASIA [None]
  - HEADACHE [None]
  - DIZZINESS [None]
